FAERS Safety Report 6982627-6 (Version None)
Quarter: 2010Q3

REPORT INFORMATION
  Report Type: 
  Country: None (occurrence: None)
  Receive Date: 20100914
  Receipt Date: 20100302
  Transmission Date: 20110219
  Serious: No
  Sender: FDA-Public Use
  Company Number: US-PFIZER INC-2010027047

PATIENT
  Sex: Male
  Weight: 108.84 kg

DRUGS (2)
  1. LYRICA [Suspect]
     Indication: NEURALGIA
     Dosage: 150 MG, 1X/DAY
     Route: 048
     Dates: start: 20090101, end: 20100301
  2. PIROXICAM [Concomitant]
     Indication: PAIN
     Dosage: UNK
     Dates: start: 19940101

REACTIONS (1)
  - PENILE SIZE REDUCED [None]
